FAERS Safety Report 21982943 (Version 1)
Quarter: 2023Q1

REPORT INFORMATION
  Report Type: Spontaneous
  Country: US (occurrence: US)
  Receive Date: 20230213
  Receipt Date: 20230213
  Transmission Date: 20230418
  Serious: No
  Sender: FDA-Public Use
  Company Number: US-BRISTOL-MYERS SQUIBB COMPANY-2023-020472

PATIENT
  Age: 71 Year
  Sex: Male
  Weight: 104.32 kg

DRUGS (1)
  1. ELIQUIS [Suspect]
     Active Substance: APIXABAN
     Indication: Cerebrovascular accident prophylaxis
     Route: 048
     Dates: start: 2023

REACTIONS (3)
  - Dizziness [Unknown]
  - Nausea [Unknown]
  - Decreased appetite [Unknown]
